FAERS Safety Report 4549472-2 (Version None)
Quarter: 2005Q1

REPORT INFORMATION
  Report Type: 
  Country: None (occurrence: None)
  Receive Date: 20050106
  Receipt Date: 20041222
  Transmission Date: 20050727
  Serious: Yes (Hospitalization)
  Sender: FDA-Public Use
  Company Number: 2004-05343

PATIENT
  Age: 84 Year
  Sex: Male

DRUGS (11)
  1. TRELSTAR DEPOT (WATSON LABORATORIES)  (TRIPTORELIN PAMOATE) INJECTABLE [Suspect]
     Indication: PROSTATE CANCER
     Dosage: 3 MG ( 1/28 DAYS), INTRAMUSCULAR
     Route: 030
  2. ACETAMINOPHEN [Suspect]
     Dosage: 2 DOSAGE FORMS, ORAL
     Route: 048
  3. ATHYMIL (MIANSERIN HYDROCHLORIDE) [Suspect]
     Indication: DEATH OF SPOUSE
     Dosage: 30 MG, DAILY, ORAL
     Route: 048
     Dates: start: 20040101
  4. ATHYMIL (MIANSERIN HYDROCHLORIDE) [Suspect]
     Indication: DEPRESSION
     Dosage: 30 MG, DAILY, ORAL
     Route: 048
     Dates: start: 20040101
  5. LASILIX (FUROSEMIDE) [Suspect]
     Dosage: 2 TABLET (20 MG), DAILY, ORAL
     Route: 048
  6. SOTALOL HCL [Suspect]
     Dosage: 80 MG, DAILY, ORAL
     Route: 048
  7. RAMIPRIL [Suspect]
     Dosage: 1.25 MG, DAILY,ORAL
     Route: 048
  8. ASASANTINE LP [Concomitant]
  9. VASTAREL ^BIOPHARMA^ (TRIMETAZIDINE HYDROCHLORIDE) [Concomitant]
  10. TRINIPATCH (GLYCERYL TRINITRATE) [Concomitant]
  11. SERETIDE ^GLAXO WELLCOME^ (FLUTICASONE PROPIONATE, SALMETEROL XINAFOAT [Concomitant]

REACTIONS (4)
  - BLOOD IRON DECREASED [None]
  - GASTRIC POLYPS [None]
  - HAEMOLYTIC ANAEMIA [None]
  - VITAMIN B12 DECREASED [None]
